FAERS Safety Report 8307927-9 (Version None)
Quarter: 2012Q2

REPORT INFORMATION
  Report Type: 
  Country: None (occurrence: None)
  Receive Date: 20120424
  Receipt Date: 20110418
  Transmission Date: 20120825
  Serious: Yes (Other)
  Sender: FDA-Public Use
  Company Number: US-GLAXOSMITHKLINE-A0923652A

PATIENT
  Sex: Female

DRUGS (1)
  1. AVANDIA [Suspect]
     Indication: DIABETES MELLITUS
     Dosage: 4MG PER DAY
     Route: 048
     Dates: start: 20090716, end: 20100125

REACTIONS (5)
  - WEIGHT INCREASED [None]
  - OEDEMA [None]
  - CHEST PAIN [None]
  - DYSPNOEA [None]
  - CEREBROVASCULAR ACCIDENT [None]
